FAERS Safety Report 8279462-8 (Version None)
Quarter: 2012Q2

REPORT INFORMATION
  Report Type: 
  Country: None (occurrence: None)
  Receive Date: 20120412
  Receipt Date: 20110623
  Transmission Date: 20120825
  Serious: No
  Sender: FDA-Public Use
  Company Number: US-ASTRAZENECA-2011SE38198

PATIENT
  Age: 55 Year
  Sex: Female

DRUGS (4)
  1. PRILOSEC [Suspect]
     Route: 048
  2. MAGNESIUM HYDROXIDE TAB [Concomitant]
  3. NEXIUM [Suspect]
     Route: 048
  4. CALCIUM CARBONATE [Concomitant]

REACTIONS (4)
  - DRUG INEFFECTIVE [None]
  - NAUSEA [None]
  - ABDOMINAL DISTENSION [None]
  - WRONG DRUG ADMINISTERED [None]
